FAERS Safety Report 7478778-2 (Version None)
Quarter: 2011Q2

REPORT INFORMATION
  Report Type: 
  Country: None (occurrence: None)
  Receive Date: 20110513
  Receipt Date: 20110510
  Transmission Date: 20111010
  Serious: Yes (Hospitalization, Other)
  Sender: FDA-Public Use
  Company Number: IT-ROCHE-741874

PATIENT
  Sex: Female
  Weight: 29 kg

DRUGS (2)
  1. ACTEMRA [Suspect]
     Route: 042
     Dates: start: 20110331
  2. ACTEMRA [Suspect]
     Indication: CASTLEMAN'S DISEASE
     Route: 042
     Dates: start: 20100930, end: 20110302

REACTIONS (3)
  - PACHYMENINGITIS [None]
  - HEADACHE [None]
  - MIGRAINE [None]
